FAERS Safety Report 8050685-6 (Version None)
Quarter: 2012Q1

REPORT INFORMATION
  Report Type: 
  Country: None (occurrence: None)
  Receive Date: 20120117
  Receipt Date: 20120117
  Transmission Date: 20120608
  Serious: No
  Sender: FDA-Public Use
  Company Number: None

PATIENT
  Age: 51 Year
  Sex: Female
  Weight: 54.431 kg

DRUGS (1)
  1. MELOXICAM [Suspect]
     Indication: TENDONITIS
     Dosage: 15 MG
     Route: 048
     Dates: start: 20111202, end: 20111225

REACTIONS (3)
  - TONGUE DISORDER [None]
  - STOMATITIS [None]
  - TONGUE ULCERATION [None]
